FAERS Safety Report 12306827 (Version 7)
Quarter: 2017Q1

REPORT INFORMATION
  Report Type: Report from Study
  Country: None (occurrence: BE)
  Receive Date: 20160426
  Receipt Date: 20170106
  Transmission Date: 20170428
  Serious: Yes (Hospitalization)
  Sender: FDA-Public Use
  Company Number: BE-ABBVIE-16P-013-1612731-00

PATIENT
  Sex: Male

DRUGS (7)
  1. DUODOPA [Suspect]
     Active Substance: CARBIDOPA\LEVODOPA
     Dosage: AM: 0ML; CD: 3.2ML/H FOR 16HRS; ND: 2ML/H FOR 8HRS; ED: 1ML
     Route: 050
     Dates: start: 20160729, end: 20160809
  2. DUODOPA [Suspect]
     Active Substance: CARBIDOPA\LEVODOPA
     Indication: PARKINSON^S DISEASE
     Dosage: AM= 0ML; CD= 4.2 ML/H DURING 16 HRS; ND = 3 ML/H DURING 8 HRS; ED = 4 ML
     Route: 050
     Dates: start: 20110405, end: 20110406
  3. DUODOPA [Suspect]
     Active Substance: CARBIDOPA\LEVODOPA
     Dosage: DOSES CONTINUOUSLY MONITORED AND ADAPTED
     Route: 050
     Dates: start: 20110406, end: 20150817
  4. DUODOPA [Suspect]
     Active Substance: CARBIDOPA\LEVODOPA
     Dosage: AM-0 ML; CD 2.8 ML/HR DURING 16 HR; ED - 1 ML; ND-2 ML/HR DURING 8 HOURS
     Route: 050
     Dates: start: 20160604, end: 20160729
  5. DUODOPA [Suspect]
     Active Substance: CARBIDOPA\LEVODOPA
     Dosage: AM: 0ML; CD: 3.5ML/H FOR 16HRS; ND: 2ML/H FOR 8HRS; ED: 1ML
     Route: 050
     Dates: start: 20160809
  6. DUODOPA [Suspect]
     Active Substance: CARBIDOPA\LEVODOPA
     Dosage: AM= 0 ML; CD = 3.5 ML/H DURING 16 HRS; ND= 2.2 ML/H DURING 8 HRS; ED= 1 ML
     Route: 050
     Dates: start: 20150817, end: 20160531
  7. DUODOPA [Suspect]
     Active Substance: CARBIDOPA\LEVODOPA
     Dosage: UNKNOWN
     Route: 050
     Dates: start: 20160601, end: 20160604

REACTIONS (6)
  - Hyperhidrosis [Unknown]
  - Fall [Unknown]
  - Malaise [Unknown]
  - On and off phenomenon [Recovering/Resolving]
  - Incorrect dose administered [Unknown]
  - Confusional state [Unknown]
